FAERS Safety Report 8102426-1 (Version None)
Quarter: 2012Q1

REPORT INFORMATION
  Report Type: 
  Country: None (occurrence: None)
  Receive Date: 20120131
  Receipt Date: 20120131
  Transmission Date: 20120608
  Serious: Yes (Other)
  Sender: FDA-Public Use
  Company Number: None

PATIENT
  Age: 53 Year
  Sex: Female
  Weight: 51.2565 kg

DRUGS (1)
  1. PYLERA [Suspect]
     Indication: HELICOBACTER INFECTION
     Dosage: 3 CAPSULES 3 TIMES DAILY ORAL
     Route: 048
     Dates: start: 20111203, end: 20111212

REACTIONS (11)
  - TONGUE COATED [None]
  - HYPOAESTHESIA [None]
  - MOVEMENT DISORDER [None]
  - ABNORMAL DREAMS [None]
  - TONGUE DISCOLOURATION [None]
  - CHILLS [None]
  - MUSCLE SPASMS [None]
  - ARTHRALGIA [None]
  - MYALGIA [None]
  - HYPOSMIA [None]
  - HEART RATE INCREASED [None]
